FAERS Safety Report 7963241-2 (Version None)
Quarter: 2011Q4

REPORT INFORMATION
  Report Type: 
  Country: None (occurrence: None)
  Receive Date: 20111208
  Receipt Date: 20111202
  Transmission Date: 20120403
  Serious: No
  Sender: FDA-Public Use
  Company Number: US-BIOGENIDEC-2010BI044757

PATIENT
  Sex: Female

DRUGS (1)
  1. TYSABRI [Suspect]
     Indication: MULTIPLE SCLEROSIS
     Route: 042
     Dates: start: 20090824

REACTIONS (5)
  - WHITE BLOOD CELL COUNT INCREASED [None]
  - HEADACHE [None]
  - DRUG HYPERSENSITIVITY [None]
  - BLADDER DISORDER [None]
  - PYREXIA [None]
